FAERS Safety Report 4967706-7 (Version None)
Quarter: 2006Q2

REPORT INFORMATION
  Report Type: 
  Country: None (occurrence: None)
  Receive Date: 20060405
  Receipt Date: 20060323
  Transmission Date: 20061013
  Serious: Yes (Hospitalization, Other)
  Sender: FDA-Public Use
  Company Number: 2006042255

PATIENT
  Age: 70 Year
  Sex: Male
  Weight: 63 kg

DRUGS (7)
  1. SUTENT [Suspect]
     Indication: RENAL CELL CARCINOMA STAGE UNSPECIFIED
     Dosage: 50 MG (50 MG, 1 IN 1 D), ORAL
     Route: 048
     Dates: start: 20060301, end: 20060315
  2. AMLODIPINE [Concomitant]
  3. COAPROVEL (HYDROCHLOROTHIAZIDE, IRBESARTAN) [Concomitant]
  4. ZOLEDRONIC ACID (ZOLEDRONIC ACID) [Concomitant]
  5. OMEPRAZOLE [Concomitant]
  6. ACETAMINOPHEN [Concomitant]
  7. LASIX [Concomitant]

REACTIONS (2)
  - ASTHENIA [None]
  - PROTEINURIA [None]
